FAERS Safety Report 8552370-0 (Version None)
Quarter: 2012Q3

REPORT INFORMATION
  Report Type: 
  Country: None (occurrence: None)
  Receive Date: 20120731
  Receipt Date: 20120629
  Transmission Date: 20120928
  Serious: Yes (Death)
  Sender: FDA-Public Use
  Company Number: US-JNJFOC-20120519366

PATIENT
  Sex: Female
  Weight: 67.59 kg

DRUGS (34)
  1. FENTANYL CITRATE [Suspect]
     Route: 062
     Dates: start: 20080116
  2. IMITREX [Concomitant]
     Indication: HEADACHE
     Route: 045
     Dates: start: 20090507
  3. VESICARE [Concomitant]
     Route: 048
     Dates: start: 20090507
  4. NEURONTIN [Concomitant]
     Route: 048
     Dates: start: 20080114
  5. ADDERALL XR 10 [Concomitant]
     Dates: start: 20091001
  6. DURAGESIC-100 [Suspect]
     Indication: PAIN
     Route: 062
  7. XANAX [Concomitant]
     Route: 048
     Dates: start: 20080114
  8. FENTANYL CITRATE [Suspect]
     Indication: PAIN
     Route: 062
     Dates: start: 20080116
  9. FENTANYL CITRATE [Suspect]
     Route: 062
  10. CYMBALTA [Concomitant]
     Route: 048
     Dates: start: 20090507
  11. MIACALCIN [Concomitant]
     Dosage: 1 SPRAY (200 UNITS) ALTERNATE NOSTRILS DAILY
     Route: 045
     Dates: start: 20080114
  12. DURAGESIC-100 [Suspect]
     Route: 062
     Dates: start: 20070531
  13. DURAGESIC-100 [Suspect]
     Route: 062
     Dates: start: 20090507
  14. FENTANYL CITRATE [Suspect]
     Route: 062
     Dates: start: 20070712, end: 20080114
  15. XANAX [Concomitant]
     Indication: ANXIETY
     Route: 048
     Dates: start: 20090507
  16. ALPRAZOLAM [Concomitant]
     Dosage: AS NEEDED
     Route: 065
  17. EPHEDRINE [Concomitant]
     Route: 065
  18. AMPHETAMINES [Concomitant]
     Route: 065
  19. MIACALCIN [Concomitant]
     Dosage: 200 UNITS ALTERNATE NOSTRILS DAILY
     Route: 045
     Dates: start: 20090507
  20. PREVACID [Concomitant]
     Route: 048
     Dates: start: 20080114
  21. PREVACID [Concomitant]
     Route: 048
     Dates: start: 20090507
  22. ALLEGRA [Concomitant]
     Route: 048
     Dates: start: 20080114
  23. ADDERALL XR 10 [Concomitant]
     Indication: ATTENTION DEFICIT/HYPERACTIVITY DISORDER
     Dates: start: 20090914
  24. ADDERALL XR 10 [Concomitant]
     Dates: start: 20091104
  25. CYMBALTA [Concomitant]
     Route: 048
     Dates: start: 20080101
  26. SILVADENE [Concomitant]
     Indication: CONTUSION
     Route: 061
     Dates: start: 20090507
  27. ZYRTEC [Concomitant]
     Route: 048
     Dates: start: 20090507
  28. LYRICA [Concomitant]
     Route: 048
  29. ENABLEX [Concomitant]
     Indication: INCONTINENCE
     Route: 048
     Dates: start: 20080114
  30. GABAPENTIN [Concomitant]
     Route: 065
  31. SILVADENE [Concomitant]
     Route: 061
     Dates: start: 20080114
  32. ADDERALL 5 [Concomitant]
     Indication: ATTENTION DEFICIT/HYPERACTIVITY DISORDER
     Route: 048
     Dates: start: 20090507
  33. ADDERALL 5 [Concomitant]
     Route: 048
     Dates: start: 20080101
  34. ADDERALL XR 10 [Concomitant]
     Dates: start: 20091012

REACTIONS (2)
  - ACCIDENTAL OVERDOSE [None]
  - DRUG EFFECT DECREASED [None]
